FAERS Safety Report 21671707 (Version 1)
Quarter: 2022Q4

REPORT INFORMATION
  Report Type: Spontaneous
  Country: US (occurrence: US)
  Receive Date: 20221202
  Receipt Date: 20221202
  Transmission Date: 20230113
  Serious: Yes (Death, Hospitalization, Other)
  Sender: FDA-Public Use
  Company Number: US-VALIDUS PHARMACEUTICALS LLC-US-VDP-2022-015838

PATIENT

DRUGS (3)
  1. MEPERIDINE HYDROCHLORIDE [Suspect]
     Active Substance: MEPERIDINE HYDROCHLORIDE
     Indication: Agitation
     Dosage: UNK
     Route: 065
     Dates: start: 1984
  2. MEPERIDINE HYDROCHLORIDE [Suspect]
     Active Substance: MEPERIDINE HYDROCHLORIDE
     Indication: Chills
  3. PHENELZINE [Suspect]
     Active Substance: PHENELZINE
     Indication: Antidepressant therapy
     Dosage: UNK
     Route: 065

REACTIONS (4)
  - Respiratory arrest [Fatal]
  - Pneumonia [Fatal]
  - Serotonin syndrome [Fatal]
  - Drug interaction [Fatal]

NARRATIVE: CASE EVENT DATE: 19840101
